FAERS Safety Report 6309853-3 (Version None)
Quarter: 2009Q3

REPORT INFORMATION
  Report Type: 
  Country: None (occurrence: None)
  Receive Date: 20090814
  Receipt Date: 20090806
  Transmission Date: 20100115
  Serious: Yes (Hospitalization, Other)
  Sender: FDA-Public Use
  Company Number: JP-PFIZER INC-2009226535

PATIENT
  Age: 75 Year

DRUGS (9)
  1. LIPITOR [Suspect]
     Indication: HYPERCHOLESTEROLAEMIA
     Dosage: 5 MG, 1X/DAY
     Route: 048
  2. TORASEMIDE [Suspect]
     Indication: OEDEMA DUE TO CARDIAC DISEASE
     Dosage: 4 MG, 1X/DAY
     Route: 048
     Dates: start: 20090527
  3. VANCOMYCIN HYDROCHLORIDE [Suspect]
     Dosage: UNK
     Dates: start: 20080101
  4. FERROMIA [Concomitant]
     Indication: ANAEMIA
     Dosage: UNK
     Route: 048
  5. MUCOSTA [Concomitant]
     Dosage: UNK
     Route: 048
  6. WARFARIN [Concomitant]
     Indication: EMBOLISM
     Route: 048
     Dates: start: 20090521, end: 20090609
  7. LAC B [Concomitant]
     Dosage: UNK
     Route: 048
  8. BROTIZOLAM [Concomitant]
     Dosage: UNK
     Route: 048
  9. ALOSENN [Concomitant]

REACTIONS (7)
  - CARDIAC FAILURE CHRONIC [None]
  - HAEMORRHAGE [None]
  - IDIOPATHIC THROMBOCYTOPENIC PURPURA [None]
  - MITRAL VALVE STENOSIS [None]
  - OEDEMA DUE TO CARDIAC DISEASE [None]
  - PLATELET COUNT DECREASED [None]
  - SPONDYLITIS [None]
